FAERS Safety Report 5664634-9 (Version None)
Quarter: 2008Q1

REPORT INFORMATION
  Report Type: 
  Country: None (occurrence: None)
  Receive Date: 20080314
  Receipt Date: 20080311
  Transmission Date: 20080703
  Serious: Yes (Hospitalization, Other)
  Sender: FDA-Public Use
  Company Number: US-MERCK-0801USA03472

PATIENT
  Age: 47 Year
  Sex: Female
  Weight: 75 kg

DRUGS (9)
  1. JANUMET [Suspect]
     Indication: TYPE 2 DIABETES MELLITUS
     Route: 048
     Dates: start: 20071220, end: 20071231
  2. VYTORIN [Concomitant]
     Route: 048
  3. LISINOPRIL [Concomitant]
     Route: 065
  4. MOBIC [Concomitant]
     Route: 065
  5. CYMBALTA [Concomitant]
     Route: 065
  6. DETROL LA [Concomitant]
     Route: 065
  7. CLONAZEPAM [Concomitant]
     Route: 065
  8. OMEPRAZOLE [Concomitant]
     Route: 065
  9. PROVIGIL [Concomitant]
     Route: 065

REACTIONS (1)
  - RENAL FAILURE ACUTE [None]
